FAERS Safety Report 10285006 (Version 2)
Quarter: 2014Q3

REPORT INFORMATION
  Report Type: Spontaneous
  Country: JP (occurrence: JP)
  Receive Date: 20140708
  Receipt Date: 20140708
  Transmission Date: 20150326
  Serious: Yes (Other)
  Sender: FDA-Public Use
  Company Number: JP-PFIZER INC-2014133577

PATIENT
  Age: 71 Year
  Sex: Male

DRUGS (7)
  1. NORVASC [Suspect]
     Active Substance: AMLODIPINE BESYLATE
     Indication: HYPERTENSION
     Dosage: 5 MG, 1X/DAY
     Route: 048
     Dates: start: 20121127, end: 20121129
  2. CERCINE [Concomitant]
     Active Substance: DIAZEPAM
     Indication: DRUG THERAPY
     Dosage: 2 MG, 3X/DAY
     Route: 048
     Dates: start: 20121115, end: 20121121
  3. ALEVIATIN [Concomitant]
     Active Substance: PHENYTOIN SODIUM
     Indication: EPILEPSY
     Dosage: 250 MG, 2X/DAY
     Route: 041
     Dates: start: 20121114, end: 20121119
  4. TEGRETOL [Suspect]
     Active Substance: CARBAMAZEPINE
     Indication: EPILEPSY
     Dosage: 100 MG, 2X/DAY
     Route: 048
     Dates: start: 20121116, end: 20121129
  5. SILECE [Concomitant]
     Active Substance: FLUNITRAZEPAM
     Indication: DRUG THERAPY
     Dosage: 1 MG, 1X/DAY
     Route: 048
     Dates: start: 20121115, end: 20121121
  6. GASTER [Concomitant]
     Active Substance: FAMOTIDINE
     Indication: PROPHYLAXIS
     Dosage: 20 MG, 2X/DAY
     Route: 042
     Dates: start: 20121114, end: 20121115
  7. ALINAMIN F [Concomitant]
     Active Substance: FURSULTIAMINE HYDROCHLORIDE
     Indication: PROPHYLAXIS
     Dosage: 50 MG, 2X/DAY
     Route: 042
     Dates: start: 20121115, end: 20121115

REACTIONS (2)
  - Immune thrombocytopenic purpura [Recovered/Resolved]
  - Pyrexia [Unknown]

NARRATIVE: CASE EVENT DATE: 20121128
